FAERS Safety Report 10182502 (Version 6)
Quarter: 2014Q4

REPORT INFORMATION
  Report Type: Report from Study
  Country: JP (occurrence: JP)
  Receive Date: 20140520
  Receipt Date: 20141015
  Transmission Date: 20150528
  Serious: Yes (Hospitalization)
  Sender: FDA-Public Use
  Company Number: JP-JNJFOC-20140510554

PATIENT
  Age: 53 Year
  Sex: Female
  Weight: 40 kg

DRUGS (11)
  1. HUMIRA [Concomitant]
     Active Substance: ADALIMUMAB
     Indication: BEHCET^S SYNDROME
     Route: 058
     Dates: start: 20140312, end: 20140324
  2. BIO-THREE [Concomitant]
     Active Substance: HERBALS
     Indication: BEHCET^S SYNDROME
     Dosage: 2DF
     Route: 048
     Dates: start: 20121113, end: 20140326
  3. PREDONINE [Concomitant]
     Active Substance: PREDNISOLONE\PREDNISOLONE ACETATE\PREDNISOLONE SODIUM SUCCINATE
     Indication: BEHCET^S SYNDROME
     Route: 048
     Dates: start: 20130919, end: 20140326
  4. BENET [Concomitant]
     Active Substance: RISEDRONIC ACID
     Indication: OSTEOPOROSIS PROPHYLAXIS
     Route: 048
     Dates: start: 20121113, end: 20140326
  5. HUMIRA [Concomitant]
     Active Substance: ADALIMUMAB
     Indication: BEHCET^S SYNDROME
     Dosage: AFTER ONCE IN 2 WEEKS, 80 MG/ TIME ONCE IN 4 WEEKS AND AFTER 40 MG/TIME, EVERY TWO WEEKS
     Route: 058
     Dates: start: 20140324
  6. INFLIXIMAB, RECOMBINANT [Suspect]
     Active Substance: INFLIXIMAB
     Indication: BEHCET^S SYNDROME
     Route: 042
     Dates: start: 20131210
  7. TAKEPRON [Concomitant]
     Active Substance: LANSOPRAZOLE
     Indication: GASTROINTESTINAL DISORDER THERAPY
     Route: 048
     Dates: start: 20121113, end: 20140326
  8. PENTASA [Concomitant]
     Active Substance: MESALAMINE
     Indication: BEHCET^S SYNDROME
     Route: 048
     Dates: end: 20140326
  9. PENTASA [Concomitant]
     Active Substance: MESALAMINE
     Indication: BEHCET^S SYNDROME
     Route: 048
     Dates: start: 20131113
  10. INFLIXIMAB, RECOMBINANT [Suspect]
     Active Substance: INFLIXIMAB
     Indication: BEHCET^S SYNDROME
     Route: 042
     Dates: start: 20130314
  11. INFLIXIMAB, RECOMBINANT [Suspect]
     Active Substance: INFLIXIMAB
     Indication: BEHCET^S SYNDROME
     Dosage: THERAPY DURATION: 50 DAYS
     Route: 042
     Dates: start: 20140128, end: 20140128

REACTIONS (5)
  - Abdominal abscess [Recovering/Resolving]
  - Fungal infection [Recovering/Resolving]
  - Peritonitis [Recovering/Resolving]
  - Behcet^s syndrome [Not Recovered/Not Resolved]
  - Therapeutic response decreased [Unknown]

NARRATIVE: CASE EVENT DATE: 2013
